FAERS Safety Report 6311086-1 (Version None)
Quarter: 2009Q3

REPORT INFORMATION
  Report Type: 
  Country: None (occurrence: None)
  Receive Date: 20090817
  Receipt Date: 20090813
  Transmission Date: 20100115
  Serious: Yes (Death, Congenital Anomaly)
  Sender: FDA-Public Use
  Company Number: FR-JNJFOC-20090701809

PATIENT
  Sex: Male
  Weight: 2.78 kg

DRUGS (2)
  1. EPITOMAX [Suspect]
     Indication: DRUG EXPOSURE DURING PREGNANCY
  2. KEPPRA [Suspect]
     Indication: DRUG EXPOSURE DURING PREGNANCY

REACTIONS (3)
  - DIAPHRAGMATIC HERNIA [None]
  - ELECTROENCEPHALOGRAM ABNORMAL [None]
  - PULMONARY ARTERIAL HYPERTENSION [None]
